FAERS Safety Report 10796066 (Version 1)
Quarter: 2015Q1

REPORT INFORMATION
  Report Type: Report from Study
  Country: US (occurrence: US)
  Receive Date: 20150216
  Receipt Date: 20150216
  Transmission Date: 20150721
  Serious: No
  Sender: FDA-Public Use
  Company Number: US-AMGEN-USASL2015011812

PATIENT
  Age: 52 Year
  Sex: Male
  Weight: 65.76 kg

DRUGS (7)
  1. INDOMETHACIN                       /00003801/ [Concomitant]
     Active Substance: INDOMETHACIN
     Dosage: 25 MG, UNK
  2. CLOBETASOL [Concomitant]
     Active Substance: CLOBETASOL
     Dosage: 0.005 %
  3. PROTOPIC [Concomitant]
     Active Substance: TACROLIMUS
     Dosage: 0.03 %
  4. CALCIUM [Concomitant]
     Active Substance: CALCIUM
     Dosage: 500 UNK, UNK
  5. VITAMIN C [Concomitant]
     Active Substance: ASCORBIC ACID
     Dosage: 500 MG, UNK
  6. DESONIDE. [Concomitant]
     Active Substance: DESONIDE
     Dosage: 0.05 %
  7. ENBREL [Suspect]
     Active Substance: ETANERCEPT
     Indication: PRODUCT USED FOR UNKNOWN INDICATION
     Dosage: 50 MG, QWK
     Route: 058

REACTIONS (4)
  - Rash [Unknown]
  - Tenderness [Unknown]
  - Testicular pain [Unknown]
  - Local swelling [Unknown]
